FAERS Safety Report 16943294 (Version 2)
Quarter: 2019Q4

REPORT INFORMATION
  Report Type: Spontaneous
  Country: PL (occurrence: PL)
  Receive Date: 20191022
  Receipt Date: 20191114
  Transmission Date: 20200122
  Serious: Yes (Death)
  Sender: FDA-Public Use
  Company Number: PL-ABBVIE-19K-129-2943796-00

PATIENT
  Age: 52 Year
  Sex: Female

DRUGS (1)
  1. VENCLYXTO [Suspect]
     Active Substance: VENETOCLAX
     Indication: CHRONIC LYMPHOCYTIC LEUKAEMIA
     Route: 048
     Dates: start: 20190410, end: 20190902

REACTIONS (3)
  - Multiple organ dysfunction syndrome [Fatal]
  - Chronic lymphocytic leukaemia [Fatal]
  - Blood disorder [Unknown]

NARRATIVE: CASE EVENT DATE: 2019
